FAERS Safety Report 15109616 (Version 1)
Quarter: 2018Q2

REPORT INFORMATION
  Report Type: Spontaneous
  Country: US (occurrence: US)
  Receive Date: 20180611
  Receipt Date: 20180611
  Transmission Date: 20180711
  Serious: Yes (Hospitalization)
  Sender: FDA-Public Use
  Company Number: None

PATIENT
  Age: 53 Year
  Sex: Male
  Weight: 111 kg

DRUGS (1)
  1. LOSARTAN. [Suspect]
     Active Substance: LOSARTAN
     Indication: HYPERTENSION
     Route: 048
     Dates: start: 20170807, end: 20171112

REACTIONS (4)
  - Dysphonia [None]
  - Angioedema [None]
  - Swollen tongue [None]
  - Epiglottic oedema [None]

NARRATIVE: CASE EVENT DATE: 20171112
